FAERS Safety Report 9924583 (Version 1)
Quarter: 2014Q1

REPORT INFORMATION
  Report Type: Spontaneous
  Country: FR (occurrence: None)
  Receive Date: 20140220
  Receipt Date: 20140220
  Transmission Date: 20141002
  Serious: Yes (Hospitalization, Other)
  Sender: FDA-Public Use
  Company Number: 2014000044

PATIENT
  Age: 72 Year
  Sex: Male

DRUGS (6)
  1. ACEON (PERINDOPRIL ERBUMINE) TABLET [Suspect]
     Indication: HYPERTENSION
     Route: 048
     Dates: end: 20131222
  2. TRAMADOL HYDROCHLORIDE (TRAMADOL HYDROCHLORIDE) [Suspect]
     Indication: PAIN
     Route: 048
     Dates: start: 20131218, end: 20131223
  3. PARACETAMOL (PARACETAMOL) [Suspect]
     Indication: PAIN
     Route: 048
     Dates: start: 20131221, end: 20131223
  4. THIOCOLCHICOSIDE [Suspect]
     Indication: NECK PAIN
     Route: 048
     Dates: start: 20131221, end: 20131222
  5. LERCAN [Suspect]
     Indication: HYPERTENSION
     Route: 048
     Dates: end: 20131224
  6. ZOLPIDEM (ZOLPIDEM) [Suspect]
     Indication: PRODUCT USED FOR UNKNOWN INDICATION
     Route: 048
     Dates: end: 20131222

REACTIONS (5)
  - Renal cyst [None]
  - Dehydration [None]
  - Diverticulitis [None]
  - Diarrhoea [None]
  - Renal failure [None]
